FAERS Safety Report 10215829 (Version 2)
Quarter: 2014Q3

REPORT INFORMATION
  Report Type: Report from Study
  Country: GR (occurrence: GR)
  Receive Date: 20140604
  Receipt Date: 20140702
  Transmission Date: 20150326
  Serious: No
  Sender: FDA-Public Use
  Company Number: PHHY2014GR067893

PATIENT
  Age: 48 Year
  Sex: Female

DRUGS (2)
  1. AMN107 [Suspect]
     Active Substance: NILOTINIB
     Dosage: 600 MG, UNK
     Route: 048
     Dates: start: 20140415, end: 20140603
  2. THYROHORMONE [Concomitant]
     Indication: HYPOTHYROIDISM
     Dosage: 0.1 MG, UNK
     Dates: start: 1996, end: 20140530

REACTIONS (3)
  - Dysphagia [Recovered/Resolved]
  - Blood thyroid stimulating hormone decreased [Unknown]
  - Goitre [Recovered/Resolved]

NARRATIVE: CASE EVENT DATE: 20140527
